FAERS Safety Report 25187395 (Version 1)
Quarter: 2025Q2

REPORT INFORMATION
  Report Type: Spontaneous
  Country: IN (occurrence: IN)
  Receive Date: 20250411
  Receipt Date: 20250411
  Transmission Date: 20250716
  Serious: Yes (Hospitalization)
  Sender: UNICHEM
  Company Number: IN-UNICHEM LABORATORIES LIMITED-UNI-2025-IN-001809

PATIENT

DRUGS (5)
  1. LABETALOL [Suspect]
     Active Substance: LABETALOL
     Indication: Hypertension
     Route: 042
  2. LABETALOL [Suspect]
     Active Substance: LABETALOL
     Route: 042
  3. MAGNESIUM SULFATE [Suspect]
     Active Substance: MAGNESIUM SULFATE
     Indication: Hypertension
     Route: 042
  4. FUROSEMIDE [Suspect]
     Active Substance: FUROSEMIDE
     Indication: Anuria
     Route: 065
  5. FUROSEMIDE [Suspect]
     Active Substance: FUROSEMIDE
     Indication: Oedema peripheral

REACTIONS (2)
  - Caesarean section [Unknown]
  - Exposure during pregnancy [Unknown]
